FAERS Safety Report 9203193 (Version 1)
Quarter: 2013Q1

REPORT INFORMATION
  Report Type: Spontaneous
  Country: MY (occurrence: None)
  Receive Date: 20130328
  Receipt Date: 20130328
  Transmission Date: 20140127
  Serious: Yes (Other)
  Sender: FDA-Public Use
  Company Number: 2013-05331

PATIENT
  Age: 35 Year
  Sex: Female

DRUGS (1)
  1. PHENTERMINE [Suspect]
     Indication: WEIGHT CONTROL

REACTIONS (2)
  - Acute myocardial infarction [None]
  - Hypotension [None]
